FAERS Safety Report 4625435-3 (Version None)
Quarter: 2005Q2

REPORT INFORMATION
  Report Type: 
  Country: None (occurrence: None)
  Receive Date: 20050401
  Receipt Date: 20050321
  Transmission Date: 20051028
  Serious: Yes (Life-Threatening)
  Sender: FDA-Public Use
  Company Number: FR-BRISTOL-MYERS SQUIBB COMPANY-12906756

PATIENT
  Age: 38 Year
  Sex: Male

DRUGS (7)
  1. MUCOMYST [Suspect]
     Indication: SINUSITIS
     Route: 048
     Dates: start: 20040116
  2. PIVALONE [Suspect]
     Indication: SINUSITIS
     Dates: start: 20040116
  3. AUGMENTIN '125' [Suspect]
     Indication: SINUSITIS
     Route: 048
     Dates: start: 20040116
  4. ASPEGIC 1000 [Suspect]
     Indication: SINUSITIS
     Route: 048
  5. POTASSIUM CLAVULANATE [Suspect]
     Indication: SINUSITIS
     Dates: start: 20040116
  6. METHYLPREDNISOLONE [Suspect]
  7. CELESTAN [Suspect]

REACTIONS (3)
  - BLOOD PRESSURE DECREASED [None]
  - LOSS OF CONSCIOUSNESS [None]
  - URTICARIA [None]
